FAERS Safety Report 7579833-9 (Version None)
Quarter: 2011Q2

REPORT INFORMATION
  Report Type: 
  Country: None (occurrence: None)
  Receive Date: 20110525
  Receipt Date: 20110224
  Transmission Date: 20111010
  Serious: Yes (Other)
  Sender: FDA-Public Use
  Company Number: 322092

PATIENT
  Age: 48 Year
  Sex: Male
  Weight: 131.5 kg

DRUGS (7)
  1. LANTUS [Concomitant]
  2. VITAMIN D [Concomitant]
  3. VICTOZA [Suspect]
     Indication: TYPE 2 DIABETES MELLITUS
     Dosage: 0.6 MG, QD, SUBCUTANEOUS
     Route: 058
  4. GLUCOVANCE [Concomitant]
  5. ASPIRIN [Concomitant]
  6. FISH OIL (FISH OIL) [Concomitant]
  7. ASCORBIC ACID [Concomitant]

REACTIONS (2)
  - ANGIOEDEMA [None]
  - BLOOD GLUCOSE INCREASED [None]
